FAERS Safety Report 8104170-3 (Version None)
Quarter: 2012Q1

REPORT INFORMATION
  Report Type: 
  Country: None (occurrence: None)
  Receive Date: 20120130
  Receipt Date: 20120118
  Transmission Date: 20120608
  Serious: Yes (Hospitalization, Other)
  Sender: FDA-Public Use
  Company Number: ERD2012A00003

PATIENT
  Sex: Female

DRUGS (1)
  1. ACTOS [Suspect]
     Indication: DIABETES MELLITUS
     Dosage: 30 MG PER ORAL
     Route: 048
     Dates: start: 20100218, end: 20110902

REACTIONS (2)
  - HAEMATURIA [None]
  - BLADDER CANCER [None]
